FAERS Safety Report 26101075 (Version 1)
Quarter: 2025Q4

REPORT INFORMATION
  Report Type: Spontaneous
  Country: US (occurrence: US)
  Receive Date: 20251128
  Receipt Date: 20251128
  Transmission Date: 20260118
  Serious: No
  Sender: ROCHE
  Company Number: US-ROCHE-10000439715

PATIENT
  Sex: Female
  Weight: 70.31 kg

DRUGS (9)
  1. LUCENTIS [Suspect]
     Active Substance: RANIBIZUMAB
     Indication: Neovascular age-related macular degeneration
     Dosage: INJECTIONS IN BOTH EYES
     Route: 050
  2. VABYSMO [Suspect]
     Active Substance: FARICIMAB-SVOA
     Indication: Neovascular age-related macular degeneration
     Dosage: INJECTIONS IN BOTH EYES
     Route: 050
  3. VABYSMO [Suspect]
     Active Substance: FARICIMAB-SVOA
  4. VABYSMO [Suspect]
     Active Substance: FARICIMAB-SVOA
  5. VABYSMO [Suspect]
     Active Substance: FARICIMAB-SVOA
  6. AVASTIN [Suspect]
     Active Substance: BEVACIZUMAB
     Indication: Neovascular age-related macular degeneration
     Dosage: INJECTIONS IN BOTH EYES
     Route: 050
  7. AMLODIPINE BESYLATE\BENAZEPRIL HYDROCHLORIDE [Concomitant]
     Active Substance: AMLODIPINE BESYLATE\BENAZEPRIL HYDROCHLORIDE
     Dosage: 5/10MG
     Route: 048
  8. ROSUVASTATIN [Concomitant]
     Active Substance: ROSUVASTATIN
     Route: 048
  9. LEVOTHYROXINE [Concomitant]
     Active Substance: LEVOTHYROXINE
     Dosage: 88 MCG
     Route: 048

REACTIONS (3)
  - Off label use [Unknown]
  - Eye disorder [Unknown]
  - Off label use [Unknown]
